FAERS Safety Report 6119512-8 (Version None)
Quarter: 2009Q1

REPORT INFORMATION
  Report Type: 
  Country: None (occurrence: None)
  Receive Date: 20090316
  Receipt Date: 20090306
  Transmission Date: 20090719
  Serious: Yes (Hospitalization)
  Sender: FDA-Public Use
  Company Number: A0773212A

PATIENT
  Age: 48 Year
  Sex: Female
  Weight: 122.3 kg

DRUGS (7)
  1. AVANDIA [Suspect]
     Indication: DIABETES MELLITUS
     Dosage: 8MG PER DAY
     Route: 048
     Dates: start: 19990719, end: 20070401
  2. LISINOPRIL [Concomitant]
  3. HYDROCODONE [Concomitant]
  4. MULTI-VITAMIN [Concomitant]
  5. DICLOFENAC SODIUM [Concomitant]
  6. CHANTIX [Concomitant]
  7. PREVACID [Concomitant]

REACTIONS (1)
  - MYOCARDIAL INFARCTION [None]
